FAERS Safety Report 19204973 (Version 1)
Quarter: 2021Q2

REPORT INFORMATION
  Report Type: Spontaneous
  Country: US (occurrence: US)
  Receive Date: 20210430
  Receipt Date: 20210430
  Transmission Date: 20210717
  Serious: No
  Sender: FDA-Public Use
  Company Number: None

PATIENT
  Age: 79 Year
  Sex: Female
  Weight: 69.3 kg

DRUGS (9)
  1. NAPROXEN. [Concomitant]
     Active Substance: NAPROXEN
  2. DESIPRAMINE [Concomitant]
     Active Substance: DESIPRAMINE
  3. HYDROCHLOROTHIAZIDE. [Concomitant]
     Active Substance: HYDROCHLOROTHIAZIDE
  4. VERZENIO [Suspect]
     Active Substance: ABEMACICLIB
     Indication: BREAST CANCER
     Route: 048
     Dates: start: 20210408
  5. ATENOLOL. [Concomitant]
     Active Substance: ATENOLOL
  6. CYCLOBENZAPRINE. [Concomitant]
     Active Substance: CYCLOBENZAPRINE
  7. DIPHENHIST [Concomitant]
     Active Substance: DIPHENHYDRAMINE HYDROCHLORIDE
  8. TYLENOL [Concomitant]
     Active Substance: ACETAMINOPHEN
  9. ANASTRAZOLE [Concomitant]
     Active Substance: ANASTROZOLE

REACTIONS (11)
  - Abdominal pain [None]
  - Vision blurred [None]
  - Rash [None]
  - Diarrhoea [None]
  - Hot flush [None]
  - Chills [None]
  - Faeces discoloured [None]
  - Insomnia [None]
  - Muscle spasms [None]
  - Malaise [None]
  - Vomiting [None]

NARRATIVE: CASE EVENT DATE: 20210430
